FAERS Safety Report 7776314-4 (Version None)
Quarter: 2011Q3

REPORT INFORMATION
  Report Type: 
  Country: None (occurrence: None)
  Receive Date: 20110921
  Receipt Date: 20110921
  Transmission Date: 20111222
  Serious: No
  Sender: FDA-Public Use
  Company Number: None

PATIENT
  Sex: Female
  Weight: 61.4 kg

DRUGS (2)
  1. FOSAMAX [Suspect]
     Indication: OSTEOPOROSIS
     Dosage: (5-10 YEARS ENDING MID 2010)
  2. BONIVA [Suspect]
     Dosage: (DURATION: 6 MONTHS STARTING MID 2010)

REACTIONS (1)
  - OSTEONECROSIS OF JAW [None]
